FAERS Safety Report 7380574-1 (Version None)
Quarter: 2011Q1

REPORT INFORMATION
  Report Type: 
  Country: None (occurrence: None)
  Receive Date: 20110329
  Receipt Date: 20110316
  Transmission Date: 20110831
  Serious: Yes (Death, Hospitalization)
  Sender: FDA-Public Use
  Company Number: US-ACTELION-A-NJ2010-38835

PATIENT

DRUGS (4)
  1. TRACLEER [Suspect]
     Dosage: 62.5 MG, BID
     Route: 048
     Dates: start: 20090501, end: 20090601
  2. TRACLEER [Suspect]
     Indication: PULMONARY ARTERIAL HYPERTENSION
     Dosage: 125 MG, BID
     Route: 048
     Dates: start: 20090601
  3. REVATIO [Concomitant]
  4. TRACLEER [Suspect]
     Dosage: UNK
     Route: 048
     Dates: start: 20110101, end: 20110312

REACTIONS (6)
  - CHRONIC OBSTRUCTIVE PULMONARY DISEASE [None]
  - DYSPNOEA [None]
  - RESPIRATORY FAILURE [None]
  - PNEUMONIA [None]
  - LUNG DISORDER [None]
  - PULMONARY OEDEMA [None]
